FAERS Safety Report 17224727 (Version 1)
Quarter: 2020Q1

REPORT INFORMATION
  Report Type: Spontaneous
  Country: US (occurrence: US)
  Receive Date: 20191231
  Receipt Date: 20191231
  Transmission Date: 20200409
  Serious: Yes (Disabling, Other)
  Sender: FDA-Public Use
  Company Number: None

PATIENT
  Age: 61 Year
  Sex: Female
  Weight: 97.2 kg

DRUGS (5)
  1. GABAPENTIN 200 MG, 3X DAILY [Suspect]
     Active Substance: GABAPENTIN
     Indication: LYME DISEASE
  2. GABAPENTIN 200 MG, 3X DAILY [Suspect]
     Active Substance: GABAPENTIN
     Indication: DIVERTICULITIS
  3. LORTAB [Suspect]
     Active Substance: ACETAMINOPHEN\HYDROCODONE BITARTRATE
  4. GABAPENTIN 200 MG, 3X DAILY [Suspect]
     Active Substance: GABAPENTIN
     Indication: FIBROMYALGIA
  5. GABAPENTIN 200 MG, 3X DAILY [Suspect]
     Active Substance: GABAPENTIN
     Indication: SPHEROCYTIC ANAEMIA

REACTIONS (1)
  - Dyspnoea [None]
